FAERS Safety Report 6977500-3 (Version None)
Quarter: 2010Q3

REPORT INFORMATION
  Report Type: 
  Country: None (occurrence: None)
  Receive Date: 20100910
  Receipt Date: 20100830
  Transmission Date: 20110219
  Serious: Yes (Death)
  Sender: FDA-Public Use
  Company Number: CH-WATSON-2010-11771

PATIENT
  Age: 36 Year
  Sex: Female

DRUGS (4)
  1. TAMOXIFEN CITRATE [Suspect]
     Indication: BREAST CANCER
     Dosage: UNK
     Dates: start: 20050801, end: 20060601
  2. DIPHENHYDRAMINE HCL [Suspect]
     Indication: PRODUCT USED FOR UNKNOWN INDICATION
     Dosage: UNK
  3. TRIPTORELIN [Concomitant]
     Indication: BREAST CANCER
     Dosage: UNK
     Dates: start: 20050101, end: 20051001
  4. GOSERELIN [Concomitant]
     Indication: BREAST CANCER
     Dosage: UNK
     Dates: start: 20000101, end: 20051001

REACTIONS (2)
  - ACUTE HEPATIC FAILURE [None]
  - POISONING [None]
